FAERS Safety Report 6155837-8 (Version None)
Quarter: 2009Q2

REPORT INFORMATION
  Report Type: 
  Country: None (occurrence: None)
  Receive Date: 20090413
  Receipt Date: 20090407
  Transmission Date: 20091009
  Serious: Yes (Hospitalization, Other)
  Sender: FDA-Public Use
  Company Number: 2008SP015242

PATIENT
  Age: 65 Year
  Sex: Female
  Weight: 59 kg

DRUGS (10)
  1. TEMODAR [Suspect]
     Indication: GLIOBLASTOMA MULTIFORME
     Dosage: 120 MG; QD; PO
     Route: 048
     Dates: start: 20080619, end: 20080729
  2. CALCIUM  /00009901/ [Concomitant]
  3. BONIVA [Concomitant]
  4. HYDROCODONE W/ [Concomitant]
  5. ACETAMINOPHEN [Concomitant]
  6. DEXAMETHASONE  /00016002/ [Concomitant]
  7. ZORRAN /00955301/ [Concomitant]
  8. PROTONIX /01263201/ [Concomitant]
  9. TYLENOL (CAPLET) [Concomitant]
  10. EXTRA STRENGTH TYLENOL [Concomitant]

REACTIONS (2)
  - PETECHIAE [None]
  - PLATELET COUNT DECREASED [None]
